FAERS Safety Report 13460060 (Version 1)
Quarter: 2017Q2

REPORT INFORMATION
  Report Type: Spontaneous
  Country: BR (occurrence: BR)
  Receive Date: 20170420
  Receipt Date: 20170420
  Transmission Date: 20170830
  Serious: Yes (Hospitalization)
  Sender: FDA-Public Use
  Company Number: BR-BIOGEN-2017BI00388740

PATIENT
  Sex: Female

DRUGS (3)
  1. AEROLIN SPRAY (SALBUTAMOL SULFATE) [Concomitant]
     Indication: COUGH
     Route: 065
  2. AVONEX [Suspect]
     Active Substance: INTERFERON BETA-1A
     Indication: MULTIPLE SCLEROSIS
     Route: 030
     Dates: end: 2013
  3. NELYA (SIC) [Concomitant]
     Indication: COUGH
     Route: 065

REACTIONS (4)
  - Lung infection [Recovered/Resolved]
  - Tachycardia [Recovered/Resolved]
  - Pyrexia [Recovered/Resolved]
  - Malaise [Recovered/Resolved]
